FAERS Safety Report 6528086-9 (Version None)
Quarter: 2009Q4

REPORT INFORMATION
  Report Type: 
  Country: None (occurrence: None)
  Receive Date: 20091230
  Receipt Date: 20091224
  Transmission Date: 20100525
  Serious: Yes (Death, Life-Threatening)
  Sender: FDA-Public Use
  Company Number: 2009JP007729

PATIENT
  Age: 80 Year
  Sex: Male
  Weight: 54 kg

DRUGS (15)
  1. TACROLIMUS [Suspect]
     Indication: LUPUS NEPHRITIS
     Dosage: 1 MG, ORAL
     Route: 048
     Dates: start: 20090708, end: 20091209
  2. PREDNISOLONE [Concomitant]
  3. VASOLATOR (GLYCERYL TRINTIRATE) TAPE [Concomitant]
  4. LANSOPRAZOLE [Concomitant]
  5. GLAKAY (MENATETRENONE) CAPSULE [Concomitant]
  6. LASIX (FUROSEMIDE SODIUM) PER ORAL NOS [Concomitant]
  7. BASEN (VOGLIBOSE) ORODISPERSIBLE CR TABLET [Concomitant]
  8. NU-LOTAN (LOSARTAN POTASSIUM) PER ORAL NOS [Concomitant]
  9. FLUITRAN (TRICHLORMETHIAZIDE) PER ORAL NOS [Concomitant]
  10. ZYLORIC (ALLOPURINOL SODIUM) PER ORAL NOS [Concomitant]
  11. LAC B (LACTOBACILLUS BIFIDUS, LYOPHILIZED) PER ORAL NOS [Concomitant]
  12. ALLELOCK (OLOPATADINE HYDROCHLORIDE) PER ORAL NOS [Concomitant]
  13. SOLANTAL (TIARAMIDE HYDROCHLORIDE) PER ORAL NOS [Concomitant]
  14. DEPAS (ETIZOLAM) PER ORAL NOS [Concomitant]
  15. AMLODINE (AMLODIPINE) ORODISPERSIBLE CR TABLET [Concomitant]

REACTIONS (2)
  - FUNGAL SKIN INFECTION [None]
  - PYODERMA [None]
